FAERS Safety Report 21583638 (Version 2)
Quarter: 2022Q4

REPORT INFORMATION
  Report Type: Spontaneous
  Country: TR (occurrence: TR)
  Receive Date: 20221111
  Receipt Date: 20221128
  Transmission Date: 20230113
  Serious: No
  Sender: FDA-Public Use
  Company Number: TR-BAYER-2022A025909

PATIENT
  Age: 31 Year
  Sex: Male

DRUGS (1)
  1. PRIMOVIST [Suspect]
     Active Substance: GADOXETATE DISODIUM
     Dosage: UNK UNK, ONCE

REACTIONS (3)
  - Device breakage [None]
  - Injury associated with device [Recovered/Resolved]
  - Syringe issue [None]
